FAERS Safety Report 10974518 (Version 1)
Quarter: 2015Q2

REPORT INFORMATION
  Report Type: Spontaneous
  Country: US (occurrence: US)
  Receive Date: 20150401
  Receipt Date: 20150401
  Transmission Date: 20150821
  Serious: Yes (Other)
  Sender: FDA-Public Use
  Company Number: US-PFIZER INC-2015109507

PATIENT
  Age: 80 Year
  Sex: Female

DRUGS (5)
  1. DETROL LA [Suspect]
     Active Substance: TOLTERODINE TARTRATE
     Indication: BLADDER DISORDER
  2. DIGOXIN. [Concomitant]
     Active Substance: DIGOXIN
     Dosage: UNK, ALTERNATE DAY
  3. DETROL LA [Suspect]
     Active Substance: TOLTERODINE TARTRATE
     Indication: RENAL DISORDER
     Dosage: 4 MG, 1X/DAY
     Route: 048
  4. LISINOPRIL. [Concomitant]
     Active Substance: LISINOPRIL
     Indication: BLOOD PRESSURE ABNORMAL
     Dosage: 40 MG, 1X/DAY
  5. ASPIRIN. [Concomitant]
     Active Substance: ASPIRIN
     Dosage: UNK, ALTERNATE DAY

REACTIONS (2)
  - Malignant neoplasm progression [Unknown]
  - Metastatic neoplasm [Unknown]

NARRATIVE: CASE EVENT DATE: 201302
